FAERS Safety Report 5813598-3 (Version None)
Quarter: 2008Q3

REPORT INFORMATION
  Report Type: 
  Country: None (occurrence: None)
  Receive Date: 20080717
  Receipt Date: 20080711
  Transmission Date: 20090109
  Serious: Yes (Hospitalization)
  Sender: FDA-Public Use
  Company Number: US-BAYER-200714094BCC

PATIENT
  Age: 50 Year
  Sex: Male

DRUGS (1)
  1. ALKA-SELTZER ORIGINAL EFFERVESCENT TABLETS [Suspect]
     Indication: DRUG USE FOR UNKNOWN INDICATION
     Route: 048
     Dates: start: 20071101

REACTIONS (1)
  - SWELLING [None]
